FAERS Safety Report 17401992 (Version 1)
Quarter: 2020Q1

REPORT INFORMATION
  Report Type: Spontaneous
  Country: DE (occurrence: DE)
  Receive Date: 20200203
  Receipt Date: 20200203
  Transmission Date: 20200409
  Serious: Yes (Other)
  Sender: FDA-Public Use
  Company Number: DE-KADMON PHARMACEUTICALS, LLC-KAD202001-000038

PATIENT
  Age: 31 Year
  Sex: Male

DRUGS (3)
  1. IMMUNOGLOBIN G [Concomitant]
     Indication: IMMUNOGLOBULINS DECREASED
     Route: 042
  2. RIBAVIRIN. [Suspect]
     Active Substance: RIBAVIRIN
     Indication: HEPATITIS E
     Dosage: 200 MG
  3. PREDNISOLONE. [Concomitant]
     Active Substance: PREDNISOLONE
     Dosage: 5 MG
     Dates: start: 2015

REACTIONS (3)
  - General physical health deterioration [Unknown]
  - Product use in unapproved indication [Unknown]
  - Thrombocytopenia [Unknown]
